FAERS Safety Report 7201201-X (Version None)
Quarter: 2010Q4

REPORT INFORMATION
  Report Type: 
  Country: None (occurrence: None)
  Receive Date: 20101227
  Receipt Date: 20101227
  Transmission Date: 20110411
  Serious: Yes (Life-Threatening)
  Sender: FDA-Public Use
  Company Number: None

PATIENT
  Age: 33 Year
  Sex: Female
  Weight: 54.4316 kg

DRUGS (1)
  1. CLARINEX-D 12 HOUR [Suspect]
     Indication: HYPERSENSITIVITY
     Dosage: D12
     Dates: start: 20101221, end: 20101222

REACTIONS (1)
  - SUICIDAL IDEATION [None]
